FAERS Safety Report 7579495-0 (Version None)
Quarter: 2011Q2

REPORT INFORMATION
  Report Type: 
  Country: None (occurrence: None)
  Receive Date: 20110629
  Receipt Date: 20101209
  Transmission Date: 20111010
  Serious: Yes (Other)
  Sender: FDA-Public Use
  Company Number: US-BAYER-201041794NA

PATIENT
  Age: 67 Year
  Sex: Male

DRUGS (11)
  1. TRASYLOL [Suspect]
     Indication: CORONARY ARTERY BYPASS
     Dosage: 50 CC/HR INFUSION
     Route: 042
     Dates: start: 20020613, end: 20020613
  2. DOPAMINE HCL [Concomitant]
     Dosage: 3 MCG/KG/MIN
     Route: 042
     Dates: start: 20020607, end: 20020607
  3. INDERAL [Concomitant]
     Dosage: 60 MG, BID
     Route: 048
     Dates: start: 20020608, end: 20020612
  4. ALTACE [Concomitant]
     Dosage: 10 MG, BID
     Route: 048
     Dates: start: 20020610, end: 20020612
  5. DEMADEX [Concomitant]
     Dosage: 40 MG, QD
     Route: 048
     Dates: start: 20020608, end: 20020609
  6. NORVASC [Concomitant]
     Dosage: 10 MG, QD
     Route: 048
  7. ACETYLSALICYLIC ACID SRT [Concomitant]
     Dosage: 325 MG, QD
     Route: 048
  8. MUCOMYST [Concomitant]
     Dosage: 600 MG, BID
     Dates: start: 20020607, end: 20020608
  9. PRAVACHOL [Concomitant]
     Dosage: 20 MG, QD
     Route: 048
     Dates: start: 20020607, end: 20020612
  10. NITROGLYCERIN [Concomitant]
     Dosage: 1 INCH EVERY 6 HOURS
     Route: 061
     Dates: start: 20020607, end: 20020613
  11. INSULIN [Concomitant]
     Dosage: SLIDING SCALE
     Route: 058

REACTIONS (8)
  - EMOTIONAL DISTRESS [None]
  - PAIN [None]
  - ANXIETY [None]
  - FEAR [None]
  - RENAL FAILURE [None]
  - UNEVALUABLE EVENT [None]
  - STRESS [None]
  - INJURY [None]
